FAERS Safety Report 8103209-9 (Version None)
Quarter: 2012Q1

REPORT INFORMATION
  Report Type: 
  Country: None (occurrence: None)
  Receive Date: 20120201
  Receipt Date: 20120126
  Transmission Date: 20120608
  Serious: No
  Sender: FDA-Public Use
  Company Number: US-JNJFOC-20120112918

PATIENT
  Sex: Female
  Weight: 53.07 kg

DRUGS (2)
  1. ADDERALL 5 [Concomitant]
     Dosage: 60 MG IN MORNING, 40 MG AT NIGHT
     Route: 048
  2. INVEGA SUSTENNA [Suspect]
     Indication: BIPOLAR DISORDER
     Route: 030
     Dates: start: 20120120

REACTIONS (1)
  - TRISMUS [None]
